FAERS Safety Report 5968972-1 (Version None)
Quarter: 2008Q4

REPORT INFORMATION
  Report Type: 
  Country: None (occurrence: None)
  Receive Date: 20081126
  Receipt Date: 20081118
  Transmission Date: 20090506
  Serious: Yes (Other)
  Sender: FDA-Public Use
  Company Number: IE-ROCHE-598161

PATIENT
  Age: 27 Year
  Sex: Male

DRUGS (2)
  1. ISOTRETINOIN [Suspect]
     Route: 065
  2. LEVOTHYROXINE SODIUM [Concomitant]
     Indication: HYPOTHYROIDISM

REACTIONS (2)
  - DERMATITIS CONTACT [None]
  - ECZEMA [None]
